FAERS Safety Report 6146854-2 (Version None)
Quarter: 2009Q2

REPORT INFORMATION
  Report Type: 
  Country: None (occurrence: None)
  Receive Date: 20090407
  Receipt Date: 20090407
  Transmission Date: 20091009
  Serious: Yes (Other)
  Sender: FDA-Public Use
  Company Number: US-PFIZER INC-2009170441

PATIENT
  Sex: Male
  Weight: 33.56 kg

DRUGS (2)
  1. LYRICA [Suspect]
     Indication: NERVE INJURY
     Dosage: UNK
     Dates: start: 20060501, end: 20060701
  2. IBUPROFEN [Concomitant]
     Dosage: UNK

REACTIONS (1)
  - DYSPHEMIA [None]
